FAERS Safety Report 5809391-8 (Version None)
Quarter: 2008Q3

REPORT INFORMATION
  Report Type: 
  Country: None (occurrence: None)
  Receive Date: 20080714
  Receipt Date: 20080710
  Transmission Date: 20090109
  Serious: Yes (Life-Threatening, Hospitalization)
  Sender: FDA-Public Use
  Company Number: PHHY2008GB13569

PATIENT

DRUGS (7)
  1. CYCLOSPORINE [Suspect]
     Indication: PSORIATIC ARTHROPATHY
     Dosage: 160 MG, UNK
     Route: 048
     Dates: start: 20070530, end: 20080601
  2. CYCLOSPORINE [Suspect]
     Indication: PSORIASIS
  3. HUMIRA [Suspect]
     Indication: PSORIATIC ARTHROPATHY
     Dosage: 40 MG, QW2
     Route: 058
     Dates: start: 20080220, end: 20080601
  4. PREDNISOLONE [Concomitant]
     Indication: PSORIATIC ARTHROPATHY
     Route: 048
  5. OMEPRAZOLE [Concomitant]
     Dosage: 20 MG/DAY
  6. CALCICHEW [Concomitant]
     Indication: OSTEOPOROSIS
  7. DICLOFENAC [Concomitant]
     Indication: PAIN
     Dosage: 75 MG, BID
     Route: 048

REACTIONS (1)
  - NECROTISING FASCIITIS [None]
